FAERS Safety Report 16715930 (Version 1)
Quarter: 2019Q3

REPORT INFORMATION
  Report Type: Spontaneous
  Country: GR (occurrence: GR)
  Receive Date: 20190819
  Receipt Date: 20190819
  Transmission Date: 20191005
  Serious: Yes (Hospitalization, Other)
  Sender: FDA-Public Use
  Company Number: GR-MYLANLABS-2019M1076444

PATIENT
  Age: 66 Year
  Sex: Female

DRUGS (1)
  1. AZITHROMYCIN ANHYDROUS. [Suspect]
     Active Substance: AZITHROMYCIN ANHYDROUS
     Indication: CAT SCRATCH DISEASE
     Dosage: UNK (FOR 3 DAYS)

REACTIONS (3)
  - Product use in unapproved indication [Unknown]
  - Jarisch-Herxheimer reaction [Recovered/Resolved]
  - Encephalopathy [Recovered/Resolved]
